FAERS Safety Report 7638262-X (Version None)
Quarter: 2011Q3

REPORT INFORMATION
  Report Type: 
  Country: None (occurrence: None)
  Receive Date: 20110720
  Receipt Date: 20110705
  Transmission Date: 20111222
  Serious: Yes (Hospitalization, Other)
  Sender: FDA-Public Use
  Company Number: AUR-APL-2011-03680

PATIENT
  Age: 66 Year
  Sex: Female

DRUGS (7)
  1. CLOZARIL [Suspect]
     Indication: SCHIZOPHRENIA
     Dosage: (425 MG),ORAL ; (425 MG),ORAL
     Route: 048
     Dates: start: 20010305
  2. CLOZARIL [Suspect]
     Indication: SCHIZOPHRENIA
     Dosage: (425 MG),ORAL ; (425 MG),ORAL
     Route: 048
     Dates: start: 20110401
  3. CLOZARIL [Suspect]
     Indication: SCHIZOPHRENIA
     Dosage: (425 MG),ORAL ; (425 MG),ORAL
     Route: 048
     Dates: start: 20030101, end: 20110228
  4. LEVOTHYROXINE SODIUM [Concomitant]
  5. AMISULPRIDE (AMISULPRIDE) [Suspect]
     Indication: SCHIZOPHRENIA
     Dosage: (300 MG,),OROPHARINGEAL
     Route: 049
     Dates: start: 20030101, end: 20110228
  6. ASPIRIN [Concomitant]
  7. SIMVASTATIN [Suspect]
     Indication: BLOOD CHOLESTEROL INCREASED
     Dosage: (40 MG),ORAL
     Route: 048
     Dates: start: 20100101, end: 20110228

REACTIONS (7)
  - PNEUMONIA [None]
  - ALANINE AMINOTRANSFERASE INCREASED [None]
  - BLOOD ALKALINE PHOSPHATASE INCREASED [None]
  - OVARIAN FIBROMA [None]
  - BLOOD BILIRUBIN INCREASED [None]
  - INTERNATIONAL NORMALISED RATIO INCREASED [None]
  - HYPOTHYROIDISM [None]
